FAERS Safety Report 8255423-X (Version None)
Quarter: 2012Q2

REPORT INFORMATION
  Report Type: 
  Country: None (occurrence: None)
  Receive Date: 20120403
  Receipt Date: 20120326
  Transmission Date: 20120825
  Serious: Yes (Other)
  Sender: FDA-Public Use
  Company Number: JP-ASTELLAS-2012JP002718

PATIENT
  Age: 73 Year
  Sex: Female

DRUGS (6)
  1. VESICARE [Suspect]
     Dosage: 10 MG, UNKNOWN/D
     Route: 048
  2. ASPIRIN [Concomitant]
     Route: 065
  3. VESICARE [Suspect]
     Dosage: 5 MG, UNKNOWN/D
     Route: 048
  4. VESICARE [Suspect]
     Dosage: UNK
     Route: 048
  5. ALENDRONATE SODIUM [Concomitant]
     Route: 065
  6. NORVASC [Concomitant]
     Dosage: UNK
     Route: 065

REACTIONS (1)
  - BLOOD POTASSIUM INCREASED [None]
